FAERS Safety Report 22254094 (Version 1)
Quarter: 2023Q2

REPORT INFORMATION
  Report Type: Spontaneous
  Country: CN (occurrence: CN)
  Receive Date: 20230426
  Receipt Date: 20230426
  Transmission Date: 20230722
  Serious: Yes (Other)
  Sender: FDA-Public Use
  Company Number: None

PATIENT
  Sex: Female
  Weight: 66 kg

DRUGS (9)
  1. DOCETAXEL [Suspect]
     Active Substance: DOCETAXEL
     Indication: Invasive ductal breast carcinoma
     Route: 065
  2. CARBOPLATIN [Suspect]
     Active Substance: CARBOPLATIN
     Indication: Invasive ductal breast carcinoma
     Route: 065
  3. TRASTUZUMAB [Suspect]
     Active Substance: TRASTUZUMAB
     Indication: Invasive ductal breast carcinoma
     Dosage: STRENGTH: 150 MG
     Route: 065
  4. CYCLOPHOSPHAMIDE [Suspect]
     Active Substance: CYCLOPHOSPHAMIDE
     Indication: Invasive ductal breast carcinoma
     Route: 065
  5. EPIRUBICIN HYDROCHLORIDE [Suspect]
     Active Substance: EPIRUBICIN HYDROCHLORIDE
     Indication: Invasive ductal breast carcinoma
     Route: 065
  6. PACLITAXEL [Suspect]
     Active Substance: PACLITAXEL
     Indication: Invasive ductal breast carcinoma
     Dosage: 450 MILLIGRAM, QD, D2, STERILE POWDER FOR INJECTION, IV DRIP
     Route: 042
     Dates: start: 20230328, end: 20230328
  7. PERJETA [Suspect]
     Active Substance: PERTUZUMAB
     Indication: Invasive ductal breast carcinoma
     Route: 065
  8. TRASTUZUMAB [Suspect]
     Active Substance: TRASTUZUMAB
     Indication: Invasive ductal breast carcinoma
     Dosage: STRENGTH: 150 MG, IV DRIP, D1
     Route: 042
     Dates: start: 20230327, end: 20230327
  9. PERJETA [Suspect]
     Active Substance: PERTUZUMAB
     Indication: Invasive ductal breast carcinoma
     Dosage: IV DRIP
     Route: 042
     Dates: start: 20230327, end: 20230327

REACTIONS (1)
  - Myelosuppression [Recovering/Resolving]
